FAERS Safety Report 9305871 (Version 1)
Quarter: 2013Q2

REPORT INFORMATION
  Report Type: Report from Study
  Country: NL (occurrence: NL)
  Receive Date: 20130523
  Receipt Date: 20130523
  Transmission Date: 20140414
  Serious: Yes (Hospitalization)
  Sender: FDA-Public Use
  Company Number: NL-TEVA-396529ISR

PATIENT
  Age: 49 Year
  Sex: Male

DRUGS (3)
  1. COPAXONE [Suspect]
     Indication: MULTIPLE SCLEROSIS
     Dosage: 20 MILLIGRAM DAILY;
     Route: 058
     Dates: start: 20130321, end: 20130326
  2. TAMSULOSINE HCL [Concomitant]
     Dosage: .4 MILLIGRAM DAILY;
     Route: 048
  3. TRIMETHOPRIM [Concomitant]
     Dosage: 100 MILLIGRAM DAILY;
     Route: 048

REACTIONS (6)
  - Injection site abscess [Recovering/Resolving]
  - Gait disturbance [Not Recovered/Not Resolved]
  - Fall [Unknown]
  - Abasia [Not Recovered/Not Resolved]
  - Asthenia [Not Recovered/Not Resolved]
  - Disability [Not Recovered/Not Resolved]
